FAERS Safety Report 21871461 (Version 1)
Quarter: 2023Q1

REPORT INFORMATION
  Report Type: Report from Study
  Country: US (occurrence: US)
  Receive Date: 20230117
  Receipt Date: 20230117
  Transmission Date: 20230418
  Serious: Yes (Other)
  Sender: FDA-Public Use
  Company Number: US-002147023-NVSC2023US006715

PATIENT
  Sex: Female

DRUGS (1)
  1. DIOVAN [Suspect]
     Active Substance: VALSARTAN
     Indication: Product used for unknown indication
     Dosage: UNK
     Route: 065
     Dates: start: 2000, end: 2009

REACTIONS (16)
  - Choking [Unknown]
  - Angioedema [Unknown]
  - Swelling face [Not Recovered/Not Resolved]
  - Swollen tongue [Unknown]
  - Pharyngeal swelling [Unknown]
  - Dyspnoea [Unknown]
  - Mood swings [Unknown]
  - Anxiety [Unknown]
  - Swelling [Unknown]
  - Vulvovaginal swelling [Unknown]
  - Urticaria [Unknown]
  - Chest pain [Unknown]
  - Hypotension [Unknown]
  - Blood cholesterol decreased [Unknown]
  - Hyponatraemia [Unknown]
  - Neoplasm [Unknown]
